FAERS Safety Report 4944504-1 (Version None)
Quarter: 2006Q1

REPORT INFORMATION
  Report Type: 
  Country: None (occurrence: None)
  Receive Date: 20060105
  Receipt Date: 20050928
  Transmission Date: 20060701
  Serious: Yes (Other)
  Sender: FDA-Public Use
  Company Number: 2005BH002148

PATIENT
  Age: 54 Year
  Sex: Female

DRUGS (1)
  1. ENLON-PLUS [Suspect]
     Indication: ANAESTHESIA REVERSAL
     Dosage: ONCE; IV
     Route: 042

REACTIONS (1)
  - BRADYCARDIA [None]
